FAERS Safety Report 26000748 (Version 1)
Quarter: 2025Q4

REPORT INFORMATION
  Report Type: Spontaneous
  Country: US (occurrence: None)
  Receive Date: 20251104
  Receipt Date: 20251104
  Transmission Date: 20260117
  Serious: No
  Sender: FDA-CTU
  Company Number: None

PATIENT
  Age: 24 Year
  Sex: Female

DRUGS (1)
  1. COLD AND HOT PAIN RELIEF [Suspect]
     Active Substance: MENTHOL
     Indication: Back pain
     Dosage: OTHER QUANTITY : 6 PATCH(ES);?
     Route: 061
     Dates: start: 20251101, end: 20251101

REACTIONS (1)
  - Chemical burn [None]

NARRATIVE: CASE EVENT DATE: 20251101
